FAERS Safety Report 6721591-1 (Version None)
Quarter: 2010Q2

REPORT INFORMATION
  Report Type: 
  Country: None (occurrence: None)
  Receive Date: 20100512
  Receipt Date: 20100428
  Transmission Date: 20101027
  Serious: Yes (Other)
  Sender: FDA-Public Use
  Company Number: PHHY2010GR27249

PATIENT
  Age: 70 Year
  Sex: Female

DRUGS (5)
  1. AFINITOR [Suspect]
     Indication: RENAL CANCER METASTATIC
     Dosage: 10 MG; UNK
     Dates: start: 20100401
  2. AFINITOR [Suspect]
     Dosage: 5 MG; UNK
     Dates: start: 20100401
  3. AVASTIN [Concomitant]
     Dosage: UNK
  4. LADOSE [Concomitant]
     Dosage: UNK
  5. LORAZEPAM [Concomitant]
     Dosage: UNK

REACTIONS (2)
  - FEELING COLD [None]
  - TREMOR [None]
